FAERS Safety Report 7865458-4 (Version None)
Quarter: 2011Q4

REPORT INFORMATION
  Report Type: 
  Country: None (occurrence: None)
  Receive Date: 20111028
  Receipt Date: 20101230
  Transmission Date: 20120403
  Serious: No
  Sender: FDA-Public Use
  Company Number: US-GLAXOSMITHKLINE-A0902065A

PATIENT
  Age: 71 Year
  Sex: Female

DRUGS (2)
  1. UNKNOWN MEDICATION [Concomitant]
     Indication: GASTROOESOPHAGEAL REFLUX DISEASE
  2. ADVAIR DISKUS 100/50 [Suspect]
     Indication: ASTHMA
     Route: 055

REACTIONS (4)
  - INCREASED UPPER AIRWAY SECRETION [None]
  - DYSPNOEA [None]
  - PEAK EXPIRATORY FLOW RATE DECREASED [None]
  - ASTHENIA [None]
